FAERS Safety Report 23016026 (Version 1)
Quarter: 2023Q4

REPORT INFORMATION
  Report Type: Spontaneous
  Country: US (occurrence: US)
  Receive Date: 20231002
  Receipt Date: 20231002
  Transmission Date: 20240110
  Serious: No
  Sender: FDA-Public Use
  Company Number: US-MYLANLABS-2023M1092844

PATIENT
  Sex: Female

DRUGS (2)
  1. ESTRADIOL [Suspect]
     Active Substance: ESTRADIOL
     Indication: Product used for unknown indication
     Dosage: 0.01 PERCENT, Q2W (TWICE A WEEK)
     Route: 067
  2. ESTRADIOL [Suspect]
     Active Substance: ESTRADIOL
     Dosage: 0.01 PERCENT, QD, (EVERY DAY FOR 3 WEEKS)
     Route: 067

REACTIONS (4)
  - Product packaging quantity issue [Unknown]
  - Product size issue [Unknown]
  - Product label issue [Unknown]
  - Off label use [Unknown]
